FAERS Safety Report 11668524 (Version 3)
Quarter: 2016Q3

REPORT INFORMATION
  Report Type: Report from Study
  Country: BR (occurrence: BR)
  Receive Date: 20151027
  Receipt Date: 20160812
  Transmission Date: 20161109
  Serious: No
  Sender: FDA-Public Use
  Company Number: PHHY2015BR138693

PATIENT
  Sex: Female
  Weight: 52 kg

DRUGS (3)
  1. EXJADE [Suspect]
     Active Substance: DEFERASIROX
     Indication: SICKLE CELL ANAEMIA
     Dosage: 10 MG/KG (1 DF OF 500 MG), QD
     Route: 065
     Dates: end: 201604
  2. EXJADE [Suspect]
     Active Substance: DEFERASIROX
     Dosage: 10 MG/KG (1 DF OF 500 MG), QD
     Route: 065
  3. HYDREA [Suspect]
     Active Substance: HYDROXYUREA
     Indication: SICKLE CELL ANAEMIA
     Route: 065

REACTIONS (5)
  - Serum ferritin increased [Unknown]
  - Pain in extremity [Unknown]
  - Pain [Unknown]
  - Movement disorder [Unknown]
  - Malaise [Recovered/Resolved]
